FAERS Safety Report 4972772-9 (Version None)
Quarter: 2006Q2

REPORT INFORMATION
  Report Type: 
  Country: None (occurrence: None)
  Receive Date: 20060414
  Receipt Date: 20060405
  Transmission Date: 20061013
  Serious: Yes (Hospitalization)
  Sender: FDA-Public Use
  Company Number: US-JNJFOC-20060401173

PATIENT
  Sex: Male
  Weight: 68.04 kg

DRUGS (2)
  1. CONCERTA [Suspect]
     Route: 048
  2. PAXIL [Concomitant]
     Indication: ANXIETY

REACTIONS (7)
  - ANOREXIA [None]
  - ANXIETY [None]
  - BIPOLAR DISORDER [None]
  - HYPERTENSION [None]
  - INTENTIONAL DRUG MISUSE [None]
  - PSYCHOMOTOR HYPERACTIVITY [None]
  - PSYCHOTIC DISORDER [None]
